FAERS Safety Report 5151306-2 (Version None)
Quarter: 2006Q4

REPORT INFORMATION
  Report Type: 
  Country: None (occurrence: None)
  Receive Date: 20061115
  Receipt Date: 20061106
  Transmission Date: 20070319
  Serious: Yes (Other)
  Sender: FDA-Public Use
  Company Number: S2006US19678

PATIENT
  Sex: Male

DRUGS (1)
  1. ZOVIRAX [Suspect]
     Indication: HERPES VIRUS INFECTION
     Dosage: 400MG TWICE PER DAY
     Route: 065

REACTIONS (5)
  - DIPLOPIA [None]
  - HERPES OPHTHALMIC [None]
  - KERATITIS [None]
  - VISION BLURRED [None]
  - VISUAL DISTURBANCE [None]
